FAERS Safety Report 5678759-5 (Version None)
Quarter: 2008Q1

REPORT INFORMATION
  Report Type: 
  Country: None (occurrence: None)
  Receive Date: 20080320
  Receipt Date: 20080310
  Transmission Date: 20080703
  Serious: Yes (Hospitalization)
  Sender: FDA-Public Use
  Company Number: DSM-2008-00277

PATIENT
  Sex: Female

DRUGS (3)
  1. COOLMETEC (HYDROCHLOROTHIAZIDE, OLMESARTAN MEDOXOMIL) (TABLET) (HYDROC [Suspect]
     Indication: HYPERTENSION
     Dosage: 20/12.5 MG (1 IN 1 D), ORAL
     Route: 048
  2. FUROSEMIDE [Concomitant]
  3. SOLUPRED (PREDNISOLONE SODIUM SULFOBENZOATE) (PREDNISOLONE SODIUM SULF [Concomitant]

REACTIONS (3)
  - DRY MOUTH [None]
  - HYPERTENSION [None]
  - HYPONATRAEMIA [None]
